FAERS Safety Report 5014696-7 (Version None)
Quarter: 2006Q2

REPORT INFORMATION
  Report Type: 
  Country: None (occurrence: None)
  Receive Date: 20060518
  Receipt Date: 20050517
  Transmission Date: 20061013
  Serious: Yes (Death, Hospitalization, Other)
  Sender: FDA-Public Use
  Company Number: 603874

PATIENT
  Age: 8 Day
  Sex: Male

DRUGS (2)
  1. ADVATE (OCTOCOG ALFA) [Suspect]
     Indication: FACTOR VIII DEFICIENCY
     Dosage: SEE IMAGE
     Dates: start: 20050511, end: 20050516
  2. ADVATE (OCTOCOG ALFA) [Suspect]
     Indication: FACTOR VIII DEFICIENCY
     Dosage: SEE IMAGE
     Dates: start: 20051112, end: 20051112

REACTIONS (6)
  - BRAIN DEATH [None]
  - CONVULSION [None]
  - FACTOR VIII INHIBITION [None]
  - HAEMORRHAGE INTRACRANIAL [None]
  - IMMUNISATION [None]
  - LABORATORY TEST INTERFERENCE [None]
